FAERS Safety Report 5670594-7 (Version None)
Quarter: 2008Q1

REPORT INFORMATION
  Report Type: 
  Country: None (occurrence: None)
  Receive Date: 20080314
  Receipt Date: 20080314
  Transmission Date: 20080703
  Serious: Yes (Hospitalization)
  Sender: FDA-Public Use
  Company Number: None

PATIENT
  Sex: Female
  Weight: 38.4 kg

DRUGS (9)
  1. TAMIFLU [Suspect]
     Indication: INFLUENZA SEROLOGY
     Dosage: 75MG TWICE DAILY PO
     Route: 048
     Dates: start: 20080307, end: 20080311
  2. AMPICILLIN/SULBACTUM [Concomitant]
  3. DANTROLENE SODIUM [Concomitant]
  4. CLONAZEPAM [Concomitant]
  5. METOCLOPRAMIDE [Concomitant]
  6. VALPROIC ACID [Concomitant]
  7. CETIRIZINE HCL [Concomitant]
  8. PANTOPRAZOLE SODIUM [Concomitant]
  9. ORTHO-NOVUM [Concomitant]

REACTIONS (2)
  - LETHARGY [None]
  - NERVOUS SYSTEM DISORDER [None]
